FAERS Safety Report 11749022 (Version 2)
Quarter: 2015Q4

REPORT INFORMATION
  Report Type: Spontaneous
  Country: JP (occurrence: JP)
  Receive Date: 20151118
  Receipt Date: 20151123
  Transmission Date: 20160304
  Serious: Yes (Death)
  Sender: FDA-Public Use
  Company Number: JP-009507513-1511JPN008245

PATIENT
  Age: 74 Year
  Sex: Female

DRUGS (4)
  1. DIAZOXIDE CAPSULES 25 MG ^MSD^ [Suspect]
     Active Substance: DIAZOXIDE
     Dosage: 25 MG, BID (ADMINISTRATION PERIOD 2-3 MONTHS
     Route: 048
     Dates: start: 201408, end: 20141101
  2. HOKUNALIN [Concomitant]
     Active Substance: TULOBUTEROL
     Dosage: DAILY DOSAGE UNKNOWN
     Route: 062
  3. TAKEPRON [Concomitant]
     Active Substance: LANSOPRAZOLE
     Dosage: DAILY DOSAGE UNKNOWN
     Route: 065
  4. TELEMINSOFT [Concomitant]
     Dosage: DAILY DOSAGE UNKNOWN
     Route: 065

REACTIONS (1)
  - Death [Fatal]

NARRATIVE: CASE EVENT DATE: 201412
